FAERS Safety Report 11129505 (Version 1)
Quarter: 2015Q2

REPORT INFORMATION
  Report Type: Spontaneous
  Country: DE (occurrence: DE)
  Receive Date: 20150521
  Receipt Date: 20150521
  Transmission Date: 20150821
  Serious: Yes (Other)
  Sender: FDA-Public Use
  Company Number: DE-GLENMARK GENERICS (EUROPE) LTD-2015GMK017037

PATIENT
  Age: 67 Year
  Sex: Female

DRUGS (3)
  1. L DOPA [Suspect]
     Active Substance: LEVODOPA
     Indication: PARKINSON^S DISEASE
     Dosage: UNK
  2. RASAGILINE [Suspect]
     Active Substance: RASAGILINE
     Indication: PARKINSON^S DISEASE
     Dosage: UNK
  3. ROPINIROLE. [Suspect]
     Active Substance: ROPINIROLE
     Indication: PARKINSON^S DISEASE
     Dosage: UNK

REACTIONS (4)
  - Oedema peripheral [Recovering/Resolving]
  - Depression [Recovering/Resolving]
  - Motor dysfunction [Recovering/Resolving]
  - Somnolence [Recovering/Resolving]
